FAERS Safety Report 17163626 (Version 1)
Quarter: 2019Q4

REPORT INFORMATION
  Report Type: Spontaneous
  Country: DE (occurrence: DE)
  Receive Date: 20191217
  Receipt Date: 20191217
  Transmission Date: 20200122
  Serious: Yes (Other)
  Sender: FDA-Public Use
  Company Number: DE-DRREDDYS-USA/GER/19/0117380

PATIENT
  Age: 4 Year
  Sex: Female

DRUGS (14)
  1. VALPROATE [Suspect]
     Active Substance: VALPROIC ACID
     Indication: EPILEPSY
  2. EVEROLIMUS. [Suspect]
     Active Substance: EVEROLIMUS
     Route: 065
  3. ZONISAMIDE. [Suspect]
     Active Substance: ZONISAMIDE
     Indication: EPILEPSY
  4. SULTIAME [Suspect]
     Active Substance: SULTHIAME
     Indication: EPILEPSY
  5. LAMOTRIGINE TABLETS [Suspect]
     Active Substance: LAMOTRIGINE
     Indication: EPILEPSY
     Route: 065
  6. VIGABATRIN. [Suspect]
     Active Substance: VIGABATRIN
     Indication: EPILEPSY
  7. EVEROLIMUS. [Suspect]
     Active Substance: EVEROLIMUS
     Indication: EPILEPSY
     Route: 065
     Dates: start: 2018
  8. LEVETIRACETAM. [Suspect]
     Active Substance: LEVETIRACETAM
     Indication: EPILEPSY
     Route: 065
  9. CARBAMAZEPINE. [Suspect]
     Active Substance: CARBAMAZEPINE
     Indication: EPILEPSY
  10. TOPIRAMATE. [Suspect]
     Active Substance: TOPIRAMATE
     Indication: EPILEPSY
  11. LACOSAMIDE. [Suspect]
     Active Substance: LACOSAMIDE
     Indication: EPILEPSY
  12. EVEROLIMUS. [Suspect]
     Active Substance: EVEROLIMUS
     Indication: PARTIAL SEIZURES
     Route: 065
     Dates: start: 201712
  13. OXCARBAZEPINE. [Suspect]
     Active Substance: OXCARBAZEPINE
     Indication: EPILEPSY
  14. EVEROLIMUS. [Suspect]
     Active Substance: EVEROLIMUS
     Route: 065

REACTIONS (4)
  - Drug ineffective [Unknown]
  - Hamartoma [Unknown]
  - Ventricular arrhythmia [Unknown]
  - Autism spectrum disorder [Unknown]
